FAERS Safety Report 4666622-8 (Version None)
Quarter: 2005Q2

REPORT INFORMATION
  Report Type: 
  Country: None (occurrence: None)
  Receive Date: 20050518
  Receipt Date: 20040923
  Transmission Date: 20051028
  Serious: Yes (Other)
  Sender: FDA-Public Use
  Company Number: 2004235374US

PATIENT
  Age: 20 Year
  Sex: Female
  Weight: 81.6 kg

DRUGS (6)
  1. DEPO-PROVERA [Suspect]
     Indication: CONTRACEPTION
     Dosage: 150 MG, FIRST INJECTION
     Dates: start: 20021031, end: 20021031
  2. DEPO-PROVERA [Suspect]
     Dates: start: 20040310, end: 20040310
  3. DEPO-PROVERA [Suspect]
     Dates: start: 20040602, end: 20040602
  4. DEPO-PROVERA [Suspect]
     Dates: start: 20040823, end: 20040823
  5. AMOXICILLIN [Concomitant]
  6. ZYRTEC-D 12 HOUR [Concomitant]

REACTIONS (1)
  - UNINTENDED PREGNANCY [None]
